FAERS Safety Report 7422393 (Version 8)
Quarter: 2013Q2

REPORT INFORMATION
  Report Type: Report from Study
  Country: DE (occurrence: DE)
  Receive Date: 20100616
  Receipt Date: 20130612
  Transmission Date: 20140414
  Serious: Yes (Life-Threatening, Hospitalization)
  Sender: FDA-Public Use
  Company Number: PHHO2010DE09086

PATIENT
  Age: 48 Year
  Sex: Male
  Weight: 82 kg

DRUGS (17)
  1. NEORAL [Suspect]
     Indication: LIVER TRANSPLANT
     Dosage: 200 MG, BID
     Route: 048
     Dates: start: 20100526, end: 20100526
  2. AMLODIPIN [Suspect]
  3. CELLCEPT [Concomitant]
     Indication: LIVER TRANSPLANT
  4. URSODEOXYCHOLIC ACID [Concomitant]
     Indication: BILE OUTPUT
  5. IDEOS [Concomitant]
  6. RAMIPRIL [Concomitant]
  7. BELOC ZOK [Concomitant]
  8. HCT [Concomitant]
  9. PANTOZOL [Concomitant]
  10. TACROLIMUS [Concomitant]
  11. URSOFALK [Concomitant]
  12. COTRIM FORTE [Concomitant]
  13. AMPHO MORONAL [Concomitant]
  14. TURIXIN [Concomitant]
  15. EBRANTIL [Concomitant]
  16. DIPIDOLOR [Concomitant]
  17. NOVALGIN [Concomitant]

REACTIONS (16)
  - Posterior reversible encephalopathy syndrome [Recovered/Resolved with Sequelae]
  - Cerebral haemorrhage [Recovered/Resolved with Sequelae]
  - Headache [Recovered/Resolved with Sequelae]
  - Nausea [Recovered/Resolved with Sequelae]
  - Vomiting [Recovered/Resolved with Sequelae]
  - Hemiparesis [Recovered/Resolved with Sequelae]
  - Agitation [Recovered/Resolved with Sequelae]
  - Aggression [Recovered/Resolved with Sequelae]
  - Persecutory delusion [Recovered/Resolved with Sequelae]
  - Somnolence [Recovered/Resolved with Sequelae]
  - Hemianopia [Recovered/Resolved with Sequelae]
  - Gait disturbance [Recovered/Resolved with Sequelae]
  - Subdural haematoma [Recovered/Resolved with Sequelae]
  - Brain oedema [Recovered/Resolved with Sequelae]
  - Thrombocytopenia [Recovered/Resolved with Sequelae]
  - Hypotension [Recovered/Resolved with Sequelae]
